FAERS Safety Report 10021306 (Version 1)
Quarter: 2014Q1

REPORT INFORMATION
  Report Type: Spontaneous
  Country: US (occurrence: None)
  Receive Date: 20140318
  Receipt Date: 20140318
  Transmission Date: 20141002
  Serious: Yes (Other)
  Sender: FDA-Public Use
  Company Number: None

PATIENT
  Age: 35 Year
  Sex: Female
  Weight: 59.88 kg

DRUGS (1)
  1. MIRENA BAYER [Suspect]
     Indication: CONTRACEPTION
     Dates: start: 20100715, end: 20140216

REACTIONS (9)
  - Alopecia [None]
  - Pain in extremity [None]
  - Anxiety [None]
  - Rash [None]
  - Urticaria [None]
  - Migraine [None]
  - Back pain [None]
  - Arthralgia [None]
  - Feeling abnormal [None]
